FAERS Safety Report 5910267-6 (Version None)
Quarter: 2008Q4

REPORT INFORMATION
  Report Type: 
  Country: None (occurrence: None)
  Receive Date: 20081007
  Receipt Date: 20080827
  Transmission Date: 20090506
  Serious: Yes (Hospitalization, Other)
  Sender: FDA-Public Use
  Company Number: A0734990A

PATIENT
  Age: 77 Year
  Sex: Female

DRUGS (4)
  1. ADVAIR DISKUS 100/50 [Suspect]
     Indication: DRUG USE FOR UNKNOWN INDICATION
     Route: 055
     Dates: start: 20080101
  2. COZAAR [Concomitant]
  3. FUROSEMIDE [Concomitant]
  4. METOPROLOL TARTRATE [Concomitant]

REACTIONS (4)
  - CHRONIC OBSTRUCTIVE PULMONARY DISEASE [None]
  - NASOPHARYNGITIS [None]
  - PRODUCT QUALITY ISSUE [None]
  - PRODUCTIVE COUGH [None]
